FAERS Safety Report 8937787 (Version 2)
Quarter: 2012Q4

REPORT INFORMATION
  Report Type: 
  Country: US (occurrence: US)
  Receive Date: 20121121
  Receipt Date: 20121212
  Transmission Date: 20130627
  Serious: Yes (Death, Hospitalization, Other)
  Sender: FDA-Public Use
  Company Number: US-ASTELLAS-1109192

PATIENT
  Sex: Male
  Weight: 79.45 kg

DRUGS (1)
  1. TARCEVA [Suspect]
     Indication: MALIGNANT RESPIRATORY TRACT NEOPLASM
     Route: 048

REACTIONS (5)
  - Death [Fatal]
  - Disease progression [Recovering/Resolving]
  - Rib fracture [Unknown]
  - Blood creatinine increased [Unknown]
  - Fall [Unknown]
